FAERS Safety Report 11130948 (Version 1)
Quarter: 2015Q2

REPORT INFORMATION
  Report Type: Report from Study
  Country: US (occurrence: US)
  Receive Date: 20150522
  Receipt Date: 20150522
  Transmission Date: 20150821
  Serious: Yes (Other)
  Sender: FDA-Public Use
  Company Number: US-BIOGENIDEC-2015BI068546

PATIENT
  Age: 60 Year
  Sex: Female
  Weight: 75 kg

DRUGS (2)
  1. AVONEX [Suspect]
     Active Substance: INTERFERON BETA-1A
     Indication: MULTIPLE SCLEROSIS
     Route: 030
     Dates: start: 2000
  2. FEMARA [Concomitant]
     Active Substance: LETROZOLE
     Route: 048

REACTIONS (3)
  - Squamous cell carcinoma of skin [Unknown]
  - Injection site reaction [Unknown]
  - Myalgia [Unknown]

NARRATIVE: CASE EVENT DATE: 200908
